FAERS Safety Report 16969798 (Version 1)
Quarter: 2019Q4

REPORT INFORMATION
  Report Type: Spontaneous
  Country: ES (occurrence: ES)
  Receive Date: 20191029
  Receipt Date: 20191029
  Transmission Date: 20200122
  Serious: Yes (Life-Threatening, Hospitalization)
  Sender: FDA-Public Use
  Company Number: ES-MYLANLABS-2019M1101727

PATIENT
  Age: 3 Year
  Sex: Female

DRUGS (11)
  1. MITOXANTRONE [Suspect]
     Active Substance: MITOXANTRONE HYDROCHLORIDE
     Indication: ACUTE MYELOID LEUKAEMIA
     Dosage: SHOP-LAM 2007
     Route: 042
     Dates: start: 20160401, end: 201605
  2. ONCO TIOTEPA [Interacting]
     Active Substance: THIOTEPA
     Indication: BONE MARROW CONDITIONING REGIMEN
     Dosage: 5 MILLIGRAM/KILOGRAM, QD
     Route: 042
     Dates: start: 20160608, end: 20160609
  3. IDARUBICIN [Interacting]
     Active Substance: IDARUBICIN
     Indication: ACUTE MYELOID LEUKAEMIA
     Dosage: (SHOP-LAM 2007)
     Route: 042
     Dates: start: 20160201, end: 20160401
  4. MYCOPHENOLATE MOFETIL. [Interacting]
     Active Substance: MYCOPHENOLATE MOFETIL
     Indication: STEM CELL TRANSPLANT
     Dosage: UNK
     Route: 065
     Dates: start: 20160724, end: 201609
  5. CICLOSPORINA [Interacting]
     Active Substance: CYCLOSPORINE
     Indication: STEM CELL TRANSPLANT
     Dosage: UNK
     Route: 042
     Dates: start: 20160614, end: 20161014
  6. ETOPOSIDE. [Interacting]
     Active Substance: ETOPOSIDE
     Indication: ACUTE MYELOID LEUKAEMIA
     Dosage: SHOP-LAM 2007
     Route: 042
     Dates: start: 20160201, end: 20160401
  7. FLUDARABINA /01004601/ [Interacting]
     Active Substance: FLUDARABINE PHOSPHATE
     Indication: BONE MARROW CONDITIONING REGIMEN
     Dosage: 50 MILLIGRAM/SQ. METER, QD
     Route: 042
     Dates: start: 20160608, end: 20160610
  8. TIMOGLOBULINA                      /00575401/ [Interacting]
     Active Substance: THYMOCYTE IMMUNE GLOBULIN NOS
     Indication: BONE MARROW CONDITIONING REGIMEN
     Dosage: 2 MILLIGRAM/KILOGRAM, QD
     Route: 042
     Dates: start: 20160608, end: 20160610
  9. CYTOSINE ARABINOSIDE [Interacting]
     Active Substance: CYTARABINE
     Indication: ACUTE MYELOID LEUKAEMIA
     Dosage: (SHOP-LAM 2007)
     Route: 042
     Dates: start: 20160129, end: 201605
  10. METOTREXATO                        /00113801/ [Interacting]
     Active Substance: METHOTREXATE
     Indication: STEM CELL TRANSPLANT
     Dosage: PAUTA CORTA 4 DOSIS
     Route: 065
     Dates: start: 20160616, end: 201606
  11. BUSULFANO [Interacting]
     Active Substance: BUSULFAN
     Indication: BONE MARROW CONDITIONING REGIMEN
     Dosage: 4.8 MILLIGRAM/KILOGRAM, QD
     Route: 042
     Dates: start: 20160608, end: 20160610

REACTIONS (2)
  - Post transplant lymphoproliferative disorder [Recovered/Resolved with Sequelae]
  - Drug interaction [Unknown]

NARRATIVE: CASE EVENT DATE: 20160923
